FAERS Safety Report 24921307 (Version 2)
Quarter: 2025Q1

REPORT INFORMATION
  Report Type: Spontaneous
  Country: ZA (occurrence: ZA)
  Receive Date: 20250204
  Receipt Date: 20250214
  Transmission Date: 20250409
  Serious: Yes (Death)
  Sender: EMD SERONO INC
  Company Number: ZA-Merck Healthcare KGaA-2025004891

PATIENT
  Age: 65 Year
  Sex: Female

DRUGS (3)
  1. BAVENCIO [Suspect]
     Active Substance: AVELUMAB
     Indication: Transitional cell cancer of renal pelvis and ureter metastatic
     Dates: start: 202412, end: 202412
  2. ESOMEPRAZOLE [Concomitant]
     Active Substance: ESOMEPRAZOLE
     Indication: Product used for unknown indication
  3. ACETAMINOPHEN [Concomitant]
     Active Substance: ACETAMINOPHEN
     Indication: Product used for unknown indication

REACTIONS (3)
  - Intestinal obstruction [Fatal]
  - Disease progression [Unknown]
  - Malaise [Unknown]

NARRATIVE: CASE EVENT DATE: 20250107
